FAERS Safety Report 5635695-8 (Version None)
Quarter: 2008Q1

REPORT INFORMATION
  Report Type: 
  Country: None (occurrence: None)
  Receive Date: 20080220
  Receipt Date: 20080204
  Transmission Date: 20080703
  Serious: Yes (Other)
  Sender: FDA-Public Use
  Company Number: PHBS2008KR00663

PATIENT
  Age: 46 Year
  Sex: Male

DRUGS (1)
  1. VISUDYNE [Suspect]
     Indication: CHORIORETINAL ATROPHY

REACTIONS (7)
  - ANGIOGRAM ABNORMAL [None]
  - DISEASE PROGRESSION [None]
  - EYE HAEMORRHAGE [None]
  - MACULAR OEDEMA [None]
  - RETINAL HAEMORRHAGE [None]
  - RETINAL SCAR [None]
  - VISUAL ACUITY REDUCED [None]
